FAERS Safety Report 13821207 (Version 2)
Quarter: 2017Q3

REPORT INFORMATION
  Report Type: Spontaneous
  Country: US (occurrence: US)
  Receive Date: 20170801
  Receipt Date: 20170904
  Transmission Date: 20171127
  Serious: No
  Sender: FDA-Public Use
  Company Number: US-PFIZER INC-2017330601

PATIENT
  Age: 7 Year
  Sex: Male
  Weight: 22.23 kg

DRUGS (2)
  1. NEOSPORIN [Suspect]
     Active Substance: BACITRACIN ZINC\NEOMYCIN SULFATE\POLYMYXIN B SULFATE
     Dosage: UNK
  2. ZINC. [Suspect]
     Active Substance: ZINC
     Dosage: UNK

REACTIONS (1)
  - Drug hypersensitivity [Unknown]
